FAERS Safety Report 17080958 (Version 1)
Quarter: 2019Q4

REPORT INFORMATION
  Report Type: Spontaneous
  Country: NL (occurrence: NL)
  Receive Date: 20191127
  Receipt Date: 20191127
  Transmission Date: 20200122
  Serious: Yes (Other)
  Sender: FDA-Public Use
  Company Number: NL-TEVA-2019-NL-1141793

PATIENT
  Age: 23 Year
  Sex: Female
  Weight: 70 kg

DRUGS (5)
  1. INSULINE ASPART INJVLST PEN 300E=3ML (100E/ML); [Concomitant]
     Dosage: 3 X A DAY VV
  2. TRETINOINE CREME 0,5MG/G; CUTAAN; [Concomitant]
     Dosage: 1DD THIN IN THE MORNING
  3. CLINDAMYCINE/TRETINOINE GEL 10/0,25MG/G [Concomitant]
     Dosage: 1DD THIN IN THE EVENING, C.G., REPEAT RECIPE 6 MONTHS.
  4. INSULINE DETEMIR INJ PEN 300E=3ML (100E/ML) [Concomitant]
     Dosage: 1 X PER DAY VV
  5. MINOCYCLINE TABLET, 100 MG (MILLIGRAM) [Suspect]
     Active Substance: MINOCYCLINE HYDROCHLORIDE
     Indication: ACNE
     Dosage: 1D1T (100 MILLIGRAM)
     Dates: start: 20190923, end: 20190926

REACTIONS (2)
  - Diabetes mellitus inadequate control [Recovering/Resolving]
  - Hyperglycaemia [Recovering/Resolving]

NARRATIVE: CASE EVENT DATE: 20190924
